FAERS Safety Report 25597462 (Version 1)
Quarter: 2025Q3

REPORT INFORMATION
  Report Type: Spontaneous
  Country: US (occurrence: US)
  Receive Date: 20250723
  Receipt Date: 20250723
  Transmission Date: 20251021
  Serious: No
  Sender: SANOFI AVENTIS
  Company Number: US-SANOFI-02595289

PATIENT
  Age: 63 Year
  Sex: Male

DRUGS (1)
  1. LANTUS SOLOSTAR [Suspect]
     Active Substance: INSULIN GLARGINE
     Indication: Diabetes mellitus
     Dosage: 38 IU, QD
     Route: 065
     Dates: start: 202501

REACTIONS (2)
  - Blood glucose increased [Unknown]
  - Device defective [Unknown]

NARRATIVE: CASE EVENT DATE: 20250101
